FAERS Safety Report 4862535-7 (Version None)
Quarter: 2005Q4

REPORT INFORMATION
  Report Type: 
  Country: None (occurrence: None)
  Receive Date: 20051221
  Receipt Date: 20051208
  Transmission Date: 20060501
  Serious: Yes (Other)
  Sender: FDA-Public Use
  Company Number: US-GLAXOSMITHKLINE-A0586316A

PATIENT
  Age: 73 Year
  Sex: Female

DRUGS (16)
  1. WELLBUTRIN XL [Suspect]
     Indication: DRUG USE FOR UNKNOWN INDICATION
     Dosage: 150MG PER DAY
     Route: 048
  2. LISINOPRIL AND HYDROCHLOROTHIAZIDE [Suspect]
     Indication: DRUG USE FOR UNKNOWN INDICATION
     Route: 065
  3. ASPIRIN [Suspect]
     Indication: DRUG USE FOR UNKNOWN INDICATION
     Dosage: 81MG PER DAY
  4. ALLOPURINOL [Suspect]
     Indication: DRUG USE FOR UNKNOWN INDICATION
     Dosage: 200MG PER DAY
  5. ACTOS [Concomitant]
     Dosage: 15MG AT NIGHT
  6. ZOLOFT [Concomitant]
     Dosage: 25MG PER DAY
  7. CRESTOR [Concomitant]
     Dosage: 10MG PER DAY
  8. LEVOXYL [Concomitant]
     Dosage: 125MCG PER DAY
  9. DETROL LA [Concomitant]
     Dosage: 4MG PER DAY
  10. BETIMOL [Concomitant]
     Dosage: 1DROP IN THE MORNING
     Route: 047
  11. XALATAN [Concomitant]
     Dosage: 1DROP AT NIGHT
     Route: 047
  12. PLAVIX [Concomitant]
     Dosage: 75MG PER DAY
  13. NORVASC [Concomitant]
     Dosage: 5MG PER DAY
  14. VITAMIN E [Concomitant]
  15. CALCIUM GLUCONATE [Concomitant]
     Dosage: 500MG PER DAY
  16. MULTI-VITAMIN [Concomitant]

REACTIONS (4)
  - ANGIONEUROTIC OEDEMA [None]
  - HYPERSENSITIVITY [None]
  - OEDEMA PERIPHERAL [None]
  - SWELLING FACE [None]
